FAERS Safety Report 23515563 (Version 1)
Quarter: 2024Q1

REPORT INFORMATION
  Report Type: Other
  Country: US (occurrence: None)
  Receive Date: 20240213
  Receipt Date: 20240213
  Transmission Date: 20240410
  Serious: Yes (Hospitalization, Other)
  Sender: FDA-Public Use
  Company Number: US-ROCHE-3102945

PATIENT
  Sex: Female
  Weight: 68.1 kg

DRUGS (11)
  1. OCREVUS [Suspect]
     Active Substance: OCRELIZUMAB
     Indication: Relapsing-remitting multiple sclerosis
     Dosage: 600 MG EVERY 6 MONTHS
     Route: 065
  2. OCREVUS [Suspect]
     Active Substance: OCRELIZUMAB
     Route: 042
     Dates: start: 2020
  3. METHYLPREDNISOLONE [Concomitant]
     Active Substance: METHYLPREDNISOLONE
  4. ACETAMINOPHEN [Concomitant]
     Active Substance: ACETAMINOPHEN
  5. DIPHENHYDRAMINE [Concomitant]
     Active Substance: DIPHENHYDRAMINE
  6. VERAPAMIL [Concomitant]
     Active Substance: VERAPAMIL HYDROCHLORIDE
     Indication: Hypertension
     Route: 048
  7. LOSARTAN [Concomitant]
     Active Substance: LOSARTAN
     Indication: Hypertension
     Route: 048
  8. BACLOFEN [Concomitant]
     Active Substance: BACLOFEN
     Indication: Muscle spasticity
     Route: 048
     Dates: start: 2022
  9. AMPYRA [Concomitant]
     Active Substance: DALFAMPRIDINE
     Indication: Muscle spasticity
     Route: 048
     Dates: start: 2022
  10. ASPIRIN [Concomitant]
     Active Substance: ASPIRIN
     Indication: Anticoagulant therapy
  11. LACTULOSE [Concomitant]
     Active Substance: LACTULOSE
     Indication: Constipation

REACTIONS (28)
  - Muscular weakness [Unknown]
  - Diplopia [Unknown]
  - Speech disorder [Unknown]
  - Lumbar puncture [Unknown]
  - Weight decreased [Unknown]
  - Blood immunoglobulin A increased [Unknown]
  - Leukopenia [Unknown]
  - Bradyphrenia [Unknown]
  - Apraxia [Unknown]
  - Affect lability [Unknown]
  - Dysarthria [Unknown]
  - Hemiparesis [Unknown]
  - Nystagmus [Unknown]
  - Dysmetria [Unknown]
  - Facial paresis [Unknown]
  - Swelling face [Unknown]
  - Trismus [Unknown]
  - Palatal disorder [Unknown]
  - Tongue movement disturbance [Unknown]
  - Quadriparesis [Unknown]
  - Myelopathy [Unknown]
  - Nervous system disorder [Unknown]
  - Urinary incontinence [Unknown]
  - Hyperreflexia [Unknown]
  - Constipation [Not Recovered/Not Resolved]
  - Gait inability [Not Recovered/Not Resolved]
  - Loss of personal independence in daily activities [Not Recovered/Not Resolved]
  - Urinary tract infection [Recovered/Resolved]

NARRATIVE: CASE EVENT DATE: 20220101
